FAERS Safety Report 8511714-6 (Version None)
Quarter: 2012Q3

REPORT INFORMATION
  Report Type: 
  Country: None (occurrence: None)
  Receive Date: 20120710
  Receipt Date: 20120710
  Transmission Date: 20120928
  Serious: Yes (Disabling)
  Sender: FDA-Public Use
  Company Number: None

PATIENT
  Sex: Female

DRUGS (1)
  1. KENALOG [Suspect]
     Indication: CYSTOID MACULAR OEDEMA
     Dosage: INTRAVITREAL ONE INTRAOCULAR
     Route: 031
     Dates: start: 20111230, end: 20120102

REACTIONS (7)
  - ENDOPHTHALMITIS [None]
  - MEDICATION RESIDUE [None]
  - PRODUCT QUALITY ISSUE [None]
  - PSEUDOENDOPHTHALMITIS [None]
  - OCULAR VASCULITIS [None]
  - EYE INFECTION FUNGAL [None]
  - RETINITIS [None]
